FAERS Safety Report 5279096-3 (Version None)
Quarter: 2007Q1

REPORT INFORMATION
  Report Type: 
  Country: None (occurrence: None)
  Receive Date: 20070328
  Receipt Date: 20061205
  Transmission Date: 20070707
  Serious: No
  Sender: FDA-Public Use
  Company Number: US-BRISTOL-MYERS SQUIBB COMPANY-13603501

PATIENT
  Age: 52 Year
  Sex: Male

DRUGS (1)
  1. BARACLUDE TABS [Suspect]
     Indication: HEPATITIS B
     Dates: start: 20060506, end: 20060628

REACTIONS (2)
  - PLATELET COUNT DECREASED [None]
  - WHITE BLOOD CELL COUNT DECREASED [None]
